FAERS Safety Report 5683278-6 (Version None)
Quarter: 2008Q1

REPORT INFORMATION
  Report Type: 
  Country: None (occurrence: None)
  Receive Date: 20080327
  Receipt Date: 20080315
  Transmission Date: 20080703
  Serious: Yes (Other)
  Sender: FDA-Public Use
  Company Number: US-PFIZER INC-2008025272

PATIENT
  Sex: Female
  Weight: 67 kg

DRUGS (15)
  1. CHANTIX [Suspect]
     Indication: SMOKING CESSATION THERAPY
  2. FIBRE, DIETARY [Concomitant]
  3. COLESTYRAMINE [Concomitant]
  4. ALL OTHER THERAPEUTIC PRODUCTS [Concomitant]
  5. PAXIL [Concomitant]
  6. CELEXA [Concomitant]
  7. ZANAFLEX [Concomitant]
  8. OXYCODONE HCL [Concomitant]
     Indication: FIBROMYALGIA
  9. VICODIN [Concomitant]
  10. PROMETHAZINE [Concomitant]
  11. IMITREX [Concomitant]
  12. HYOSCYAMINE SULFATE [Concomitant]
     Route: 060
  13. ATIVAN [Concomitant]
  14. FEMHRT [Concomitant]
  15. ZYRTEC [Concomitant]

REACTIONS (2)
  - FIBROMYALGIA [None]
  - MUSCLE SPASMS [None]
